FAERS Safety Report 24770904 (Version 3)
Quarter: 2025Q1

REPORT INFORMATION
  Report Type: Spontaneous
  Country: ES (occurrence: ES)
  Receive Date: 20241224
  Receipt Date: 20250128
  Transmission Date: 20250408
  Serious: Yes (Other)
  Sender: GILEAD
  Company Number: None

PATIENT
  Age: 53 Year
  Sex: Male
  Weight: 79 kg

DRUGS (2)
  1. BIKTARVY [Suspect]
     Active Substance: BICTEGRAVIR SODIUM\EMTRICITABINE\TENOFOVIR ALAFENAMIDE FUMARATE
     Indication: Asymptomatic HIV infection
     Route: 065
     Dates: start: 20191212
  2. STELARA [Suspect]
     Active Substance: USTEKINUMAB
     Indication: Enteropathic spondylitis
     Route: 065
     Dates: start: 20211001

REACTIONS (2)
  - Peripheral sensory neuropathy [Unknown]
  - Peripheral motor neuropathy [Unknown]

NARRATIVE: CASE EVENT DATE: 20240815
